FAERS Safety Report 24308628 (Version 2)
Quarter: 2024Q4

REPORT INFORMATION
  Report Type: Report from Study
  Country: US (occurrence: US)
  Receive Date: 20240911
  Receipt Date: 20241008
  Transmission Date: 20250115
  Serious: Yes (Disabling)
  Sender: SUNOVION
  Company Number: US-SUMITOMO PHARMA SWITZERLAND GMBH-2024MYSCI0700752

PATIENT

DRUGS (2)
  1. ORGOVYX [Suspect]
     Active Substance: RELUGOLIX
     Indication: Prostate cancer
     Dosage: 360 MG
     Route: 048
     Dates: start: 20220803, end: 20220803
  2. ORGOVYX [Suspect]
     Active Substance: RELUGOLIX
     Dosage: 120 MG, QD
     Route: 048
     Dates: start: 20220804

REACTIONS (2)
  - Memory impairment [Recovering/Resolving]
  - Product dose omission issue [Recovered/Resolved with Sequelae]

NARRATIVE: CASE EVENT DATE: 20240201
